APPROVED DRUG PRODUCT: NIACIN
Active Ingredient: NIACIN
Strength: 1GM
Dosage Form/Route: TABLET, EXTENDED RELEASE;ORAL
Application: A212017 | Product #003
Applicant: YICHANG HUMANWELL PHARMACEUTICAL CO LTD
Approved: Jun 10, 2019 | RLD: No | RS: No | Type: DISCN